FAERS Safety Report 4700567-X (Version None)
Quarter: 2005Q2

REPORT INFORMATION
  Report Type: 
  Country: None (occurrence: None)
  Receive Date: 20050627
  Receipt Date: 20050627
  Transmission Date: 20051028
  Serious: No
  Sender: FDA-Public Use
  Company Number: None

PATIENT
  Sex: Male
  Weight: 92 kg

DRUGS (3)
  1. TEMOZOLOMIDE [Suspect]
     Dosage: 150 MG/M2/DAY FOR FIVE DAYS
     Route: 048
     Dates: start: 20050510, end: 20050621
  2. RADIATION THERAPY [Suspect]
     Dosage: SEE IMAGE
  3. IRINOTECAN [Suspect]
     Dosage: SEE IMAGE

REACTIONS (2)
  - NEUTROPHIL COUNT DECREASED [None]
  - PLATELET COUNT DECREASED [None]
